FAERS Safety Report 5142838-1 (Version None)
Quarter: 2006Q4

REPORT INFORMATION
  Report Type: 
  Country: None (occurrence: None)
  Receive Date: 20061030
  Receipt Date: 20061016
  Transmission Date: 20070319
  Serious: Yes (Death)
  Sender: FDA-Public Use
  Company Number: HQWYE382711NOV04

PATIENT
  Age: 54 Year
  Sex: Female
  Weight: 46.94 kg

DRUGS (2)
  1. PREMPRO [Suspect]
  2. PREMARIN [Suspect]

REACTIONS (6)
  - ADENOMYOSIS [None]
  - ENDOMETRIAL ATROPHY [None]
  - OVARIAN CANCER METASTATIC [None]
  - OVARIAN ENLARGEMENT [None]
  - PARAESTHESIA [None]
  - SKIN DISCOLOURATION [None]
